FAERS Safety Report 4709677-4 (Version None)
Quarter: 2005Q3

REPORT INFORMATION
  Report Type: 
  Country: None (occurrence: None)
  Receive Date: 20050707
  Receipt Date: 20050621
  Transmission Date: 20060218
  Serious: Yes (Disabling, Other)
  Sender: FDA-Public Use
  Company Number: USA050598437

PATIENT
  Sex: Female

DRUGS (4)
  1. PROZAC WEEKLY [Suspect]
     Dosage: 180 MG/1 WEEK
     Dates: start: 19980101
  2. CHEMOTHERAPY [Concomitant]
  3. TAMOXIFEN [Concomitant]
  4. BIPHOSPHONATES [Concomitant]

REACTIONS (10)
  - BREAST CANCER METASTATIC [None]
  - HYSTERECTOMY [None]
  - METASTASES TO BONE [None]
  - OOPHORECTOMY [None]
  - OSTEOPOROSIS [None]
  - PRESCRIBED OVERDOSE [None]
  - SPINAL COMPRESSION FRACTURE [None]
  - SPINAL FRACTURE [None]
  - STRESS FRACTURE [None]
  - SUICIDE ATTEMPT [None]
